FAERS Safety Report 20851111 (Version 3)
Quarter: 2022Q3

REPORT INFORMATION
  Report Type: Spontaneous
  Country: US (occurrence: US)
  Receive Date: 20220519
  Receipt Date: 20220907
  Transmission Date: 20221027
  Serious: Yes (Death)
  Sender: FDA-Public Use
  Company Number: US-PFIZER INC-202101075996

PATIENT
  Age: 8 Year
  Sex: Male

DRUGS (3)
  1. LORBRENA [Suspect]
     Active Substance: LORLATINIB
     Indication: Neuroblastoma
     Dosage: 100 MG, DAILY
  2. LORBRENA [Suspect]
     Active Substance: LORLATINIB
     Indication: Adrenal gland cancer
     Dosage: 25 MG
  3. LORBRENA [Suspect]
     Active Substance: LORLATINIB
     Dosage: 125 MG, DAILY

REACTIONS (3)
  - Death [Fatal]
  - Off label use [Unknown]
  - Off label use [Unknown]

NARRATIVE: CASE EVENT DATE: 20220701
